FAERS Safety Report 9169086 (Version 4)
Quarter: 2013Q2

REPORT INFORMATION
  Report Type: Spontaneous
  Country: US (occurrence: US)
  Receive Date: 20130318
  Receipt Date: 20130506
  Transmission Date: 20140414
  Serious: Yes (Other)
  Sender: FDA-Public Use
  Company Number: US-AMGEN-USASP2013016902

PATIENT
  Age: 76 Year
  Sex: Female
  Weight: 59.6 kg

DRUGS (9)
  1. ARANESP [Suspect]
     Indication: NEPHROGENIC ANAEMIA
     Dosage: 100 MUG, Q4WK
     Route: 058
     Dates: start: 20120712, end: 20130207
  2. ARANESP [Suspect]
     Dosage: 200 MUG, UNK
  3. ATENOLOL [Concomitant]
     Indication: HYPERTENSION
     Dosage: 100 MG, QD
     Route: 048
     Dates: start: 20100303
  4. HYDROCHLOROTHIAZIDE [Concomitant]
     Indication: HYPERTENSION
     Dosage: 25 MG, QD
     Route: 048
     Dates: start: 20100303
  5. LISINOPRIL [Concomitant]
     Indication: HYPERTENSION
     Dosage: 20 MG, QD
     Route: 048
  6. OMEPRAZOLE [Concomitant]
     Indication: GASTROOESOPHAGEAL REFLUX DISEASE
     Dosage: 20 MG, QD
     Route: 048
     Dates: start: 20100303
  7. SIMVASTATIN [Concomitant]
     Indication: CORONARY ARTERY DISEASE
     Dosage: 80 MG, 1 DF, EVERY PM
     Route: 048
     Dates: start: 20100303
  8. PYRIDOXINE [Concomitant]
     Dosage: 100 MG, QD
     Route: 048
  9. UREA [Concomitant]
     Dosage: UNK UNK, QD

REACTIONS (5)
  - Therapeutic response decreased [Unknown]
  - Haemoglobin decreased [Recovering/Resolving]
  - Palpitations [Recovering/Resolving]
  - Gait disturbance [Unknown]
  - Injection site pain [Unknown]
